FAERS Safety Report 9109183 (Version 2)
Quarter: 2013Q3

REPORT INFORMATION
  Report Type: Spontaneous
  Country: US (occurrence: US)
  Receive Date: 20130222
  Receipt Date: 20130916
  Transmission Date: 20140515
  Serious: Yes (Death, Hospitalization, Disabling, Other)
  Sender: FDA-Public Use
  Company Number: US-009507513-1302USA009937

PATIENT
  Sex: Male
  Weight: 98.6 kg

DRUGS (19)
  1. JANUVIA [Suspect]
     Indication: TYPE 2 DIABETES MELLITUS
     Dosage: 100 MG, QD
     Route: 048
     Dates: start: 200802, end: 201101
  2. ACTOS [Concomitant]
     Indication: TYPE 2 DIABETES MELLITUS
     Dosage: 15 DF, QD
  3. METFORMIN [Concomitant]
     Indication: TYPE 2 DIABETES MELLITUS
  4. GLIPIZIDE [Concomitant]
     Indication: TYPE 2 DIABETES MELLITUS
  5. GLUCOPHAGE [Concomitant]
     Indication: TYPE 2 DIABETES MELLITUS
     Dosage: 1000 MG, BID
  6. GLUCOTROL [Concomitant]
     Indication: TYPE 2 DIABETES MELLITUS
     Dosage: UNK
  7. HUMULIN [Concomitant]
     Indication: TYPE 2 DIABETES MELLITUS
  8. LEVEMIR [Concomitant]
     Indication: TYPE 2 DIABETES MELLITUS
  9. ASPIRIN [Concomitant]
     Dosage: 81 MG, QD
  10. LIPITOR [Concomitant]
     Dosage: 20 MG, HS
  11. ALTACE [Concomitant]
     Dosage: 10 MG, QD
  12. HYDRODIURIL [Concomitant]
     Dosage: 25 MG, QD
  13. OXYCONTIN [Concomitant]
     Dosage: 40 MG, BID
  14. PREVACID [Concomitant]
     Dosage: 30 MG, QD
  15. NORCO [Concomitant]
     Dosage: UNK UNK, PRN
  16. TRICOR [Concomitant]
     Dosage: 145 MG, QD
  17. DOXYCYCLINE HYCLATE [Concomitant]
     Dosage: 100 MG, BID
  18. FLEXERIL [Concomitant]
     Dosage: 5 MG, TID
  19. GLUCOTROL XL [Concomitant]
     Dosage: 10 MG, BID

REACTIONS (17)
  - Pancreatic carcinoma metastatic [Fatal]
  - Metastases to liver [Fatal]
  - Metastases to lung [Fatal]
  - Pancreaticoduodenectomy [Unknown]
  - Supraventricular tachycardia [Unknown]
  - Radiotherapy to pancreas [Unknown]
  - Chemotherapy [Unknown]
  - Dehydration [Unknown]
  - Poisoning [Unknown]
  - Hypertension [Unknown]
  - Anxiety [Unknown]
  - Dermal cyst [Unknown]
  - Diverticulum intestinal [Unknown]
  - Oedema peripheral [Unknown]
  - Hypoglycaemia [Unknown]
  - Constipation [Unknown]
  - Drug ineffective [Unknown]
